FAERS Safety Report 7469005-0 (Version None)
Quarter: 2011Q2

REPORT INFORMATION
  Report Type: 
  Country: None (occurrence: None)
  Receive Date: 20110510
  Receipt Date: 20110426
  Transmission Date: 20111010
  Serious: Yes (Life-Threatening, Hospitalization)
  Sender: FDA-Public Use
  Company Number: FR-JNJFOC-20110500762

PATIENT
  Sex: Female

DRUGS (10)
  1. ZOLPIDEM [Concomitant]
  2. DIPROSONE [Concomitant]
  3. ACETAMINOPHEN AND TRAMADOL HCL [Suspect]
     Indication: PRODUCT USED FOR UNKNOWN INDICATION
     Route: 048
  4. DIPROSALIC [Concomitant]
  5. TOPALGIC [Concomitant]
  6. AMITRIPTYLINE HCL [Suspect]
     Indication: TENSION HEADACHE
     Route: 048
  7. PROGESTERONE [Concomitant]
  8. XANAX [Suspect]
     Route: 065
  9. XANAX [Suspect]
     Indication: PRODUCT USED FOR UNKNOWN INDICATION
     Route: 065
  10. ESTREVA [Concomitant]

REACTIONS (4)
  - ABNORMAL BEHAVIOUR [None]
  - DEPRESSED MOOD [None]
  - MEMORY IMPAIRMENT [None]
  - INTENTIONAL OVERDOSE [None]
